FAERS Safety Report 17660748 (Version 1)
Quarter: 2020Q2

REPORT INFORMATION
  Report Type: Spontaneous
  Country: JP (occurrence: JP)
  Receive Date: 20200413
  Receipt Date: 20200413
  Transmission Date: 20200713
  Serious: Yes (Hospitalization, Other)
  Sender: FDA-Public Use
  Company Number: JP-MYLANLABS-2020M1035436

PATIENT
  Age: 44 Year
  Sex: Male

DRUGS (4)
  1. LIDOCAINE. [Suspect]
     Active Substance: LIDOCAINE
     Indication: VENTRICULAR ARRHYTHMIA
     Route: 065
  2. AMIODARONE [Suspect]
     Active Substance: AMIODARONE
     Indication: VENTRICULAR ARRHYTHMIA
     Route: 065
  3. MEXILETINE [Suspect]
     Active Substance: MEXILETINE
     Indication: VENTRICULAR ARRHYTHMIA
     Route: 065
  4. NIFEKALANT [Suspect]
     Active Substance: NIFEKALANT
     Indication: VENTRICULAR ARRHYTHMIA
     Route: 065

REACTIONS (1)
  - Drug ineffective [Unknown]
